FAERS Safety Report 17381716 (Version 1)
Quarter: 2020Q1

REPORT INFORMATION
  Report Type: Spontaneous
  Country: IT (occurrence: IT)
  Receive Date: 20200206
  Receipt Date: 20200206
  Transmission Date: 20200409
  Serious: Yes (Other)
  Sender: FDA-Public Use
  Company Number: IT-SA-2019SA256335

PATIENT
  Age: 63 Year
  Sex: Male

DRUGS (8)
  1. FLUOROURACIL. [Suspect]
     Active Substance: FLUOROURACIL
     Indication: RECTAL NEOPLASM
     Dosage: UNK
     Route: 042
     Dates: start: 20190314, end: 20190528
  2. ONDANSETRONE ACCORD HEALTHCARE [Concomitant]
     Active Substance: ONDANSETRON HYDROCHLORIDE
  3. PLASIL [METOCLOPRAMIDE] [Concomitant]
  4. CALCIUM LEVOFOLINATE [Concomitant]
     Active Substance: LEVOLEUCOVORIN CALCIUM
     Dosage: UNK
     Route: 065
  5. OXALIPLATIN. [Suspect]
     Active Substance: OXALIPLATIN
     Indication: RECTAL NEOPLASM
     Dosage: UNK
     Route: 042
     Dates: start: 20190314, end: 20190529
  6. ZARZIO [Concomitant]
     Active Substance: FILGRASTIM
     Dosage: UNK
  7. LOPERAMIDE HEXAL [Concomitant]
  8. TWICE [Concomitant]

REACTIONS (8)
  - Hypersensitivity [Unknown]
  - Nausea [Unknown]
  - Insomnia [Unknown]
  - Asthenia [Unknown]
  - Neutropenia [Unknown]
  - Dysgeusia [Unknown]
  - Phlebitis [Unknown]
  - Dry skin [Unknown]

NARRATIVE: CASE EVENT DATE: 20190414
